FAERS Safety Report 15778706 (Version 4)
Quarter: 2019Q4

REPORT INFORMATION
  Report Type: Report from Study
  Country: FR (occurrence: FR)
  Receive Date: 20190101
  Receipt Date: 20191219
  Transmission Date: 20200122
  Serious: Yes (Hospitalization, Other)
  Sender: FDA-Public Use
  Company Number: FR-AUROBINDO-AUR-APL-2018-063859

PATIENT
  Age: 24 Year
  Sex: Female

DRUGS (1)
  1. AMOXICILLIN. [Suspect]
     Active Substance: AMOXICILLIN
     Indication: PREMATURE RUPTURE OF MEMBRANES
     Dosage: UNK
     Route: 065

REACTIONS (8)
  - Diarrhoea [Unknown]
  - Intentional product use issue [Unknown]
  - Live birth [Unknown]
  - Clostridium difficile infection [Unknown]
  - Systemic inflammatory response syndrome [Unknown]
  - Product use in unapproved indication [Unknown]
  - Exposure during pregnancy [Recovered/Resolved]
  - Pyrexia [Unknown]
